FAERS Safety Report 7231255-6 (Version None)
Quarter: 2011Q1

REPORT INFORMATION
  Report Type: 
  Country: None (occurrence: None)
  Receive Date: 20110118
  Receipt Date: 20101230
  Transmission Date: 20110831
  Serious: No
  Sender: FDA-Public Use
  Company Number: JP-ROCHE-753246

PATIENT
  Age: 9 Year
  Sex: Female
  Weight: 23 kg

DRUGS (2)
  1. TAMIFLU [Suspect]
     Route: 048
     Dates: start: 20101229, end: 20101229
  2. TAMIFLU [Suspect]
     Route: 048
     Dates: start: 20101228, end: 20101228

REACTIONS (2)
  - ACCIDENTAL OVERDOSE [None]
  - VOMITING [None]
